FAERS Safety Report 17804780 (Version 1)
Quarter: 2020Q2

REPORT INFORMATION
  Report Type: Spontaneous
  Country: US (occurrence: US)
  Receive Date: 20200520
  Receipt Date: 20200520
  Transmission Date: 20200714
  Serious: Yes (Other)
  Sender: FDA-Public Use
  Company Number: US-BEH-2020117507

PATIENT
  Sex: Female

DRUGS (1)
  1. HIZENTRA [Suspect]
     Active Substance: HUMAN IMMUNOGLOBULIN G
     Route: 065

REACTIONS (8)
  - Infusion site pruritus [Unknown]
  - Pain [Unknown]
  - Cognitive disorder [Unknown]
  - Arthralgia [Unknown]
  - Urticaria [Unknown]
  - Bone pain [Unknown]
  - Angioedema [Unknown]
  - Disorganised speech [Unknown]

NARRATIVE: CASE EVENT DATE: 202005
